FAERS Safety Report 26204045 (Version 1)
Quarter: 2025Q4

REPORT INFORMATION
  Report Type: Spontaneous
  Country: EU (occurrence: EU)
  Receive Date: 20251226
  Receipt Date: 20251226
  Transmission Date: 20260118
  Serious: Yes (Other)
  Sender: Vantive US Healthcare
  Company Number: EU-VANTIVE-2025VAN005841

PATIENT
  Age: 51 Year
  Sex: Male

DRUGS (28)
  1. CALCIUM CL\DEXTROSE\MAGNESIUM CL\SODIUM BICAR\SODIUM CL\SODIUM LACT [Suspect]
     Active Substance: CALCIUM CHLORIDE\DEXTROSE MONOHYDRATE\MAGNESIUM CHLORIDE\SODIUM BICARBONATE\SODIUM CHLORIDE\SODIUM L
     Dosage: 15 L VIA APD
  2. CALCIUM CL\DEXTROSE\MAGNESIUM CL\SODIUM BICAR\SODIUM CL\SODIUM LACT [Suspect]
     Active Substance: CALCIUM CHLORIDE\DEXTROSE MONOHYDRATE\MAGNESIUM CHLORIDE\SODIUM BICARBONATE\SODIUM CHLORIDE\SODIUM L
     Dosage: 15 L VIA APD
  3. CALCIUM CL\DEXTROSE\MAGNESIUM CL\SODIUM BICAR\SODIUM CL\SODIUM LACT [Suspect]
     Active Substance: CALCIUM CHLORIDE\DEXTROSE MONOHYDRATE\MAGNESIUM CHLORIDE\SODIUM BICARBONATE\SODIUM CHLORIDE\SODIUM L
     Dosage: 2 LITERS THRICE
  4. CALCIUM CL\DEXTROSE\MAGNESIUM CL\SODIUM BICAR\SODIUM CL\SODIUM LACT [Suspect]
     Active Substance: CALCIUM CHLORIDE\DEXTROSE MONOHYDRATE\MAGNESIUM CHLORIDE\SODIUM BICARBONATE\SODIUM CHLORIDE\SODIUM L
     Dosage: 2 L VIA MANUAL EXCHANGE
  5. CALCIUM CL\DEXTROSE\MAGNESIUM CL\SODIUM BICAR\SODIUM CL\SODIUM LACT [Suspect]
     Active Substance: CALCIUM CHLORIDE\DEXTROSE MONOHYDRATE\MAGNESIUM CHLORIDE\SODIUM BICARBONATE\SODIUM CHLORIDE\SODIUM L
     Dosage: 5 L VIA APD
  6. CALCIUM CL\DEXTROSE\MAGNESIUM CL\SODIUM BICAR\SODIUM CL\SODIUM LACT [Suspect]
     Active Substance: CALCIUM CHLORIDE\DEXTROSE MONOHYDRATE\MAGNESIUM CHLORIDE\SODIUM BICARBONATE\SODIUM CHLORIDE\SODIUM L
     Dosage: 5 L VIA APD
  7. EXTRANEAL [Suspect]
     Active Substance: CALCIUM CHLORIDE\ICODEXTRIN\MAGNESIUM CHLORIDE\SODIUM CHLORIDE\SODIUM LACTATE
     Dosage: 2 L
  8. EXTRANEAL [Suspect]
     Active Substance: CALCIUM CHLORIDE\ICODEXTRIN\MAGNESIUM CHLORIDE\SODIUM CHLORIDE\SODIUM LACTATE
     Dosage: 2 L
  9. LISINOPRIL [Concomitant]
     Active Substance: LISINOPRIL
     Dosage: 1 TAB/BREAKFAST
  10. LASIX [Concomitant]
     Active Substance: FUROSEMIDE
     Dosage: 3 TABS IN BREAKFAST AND 3 TABS AFTERNOON SNACK
  11. DIULO [Concomitant]
     Active Substance: METOLAZONE
     Dosage: 0.5 TABLET PER BREAKFAST
  12. Dagravit b complex [Concomitant]
     Dosage: 1 TABLET PER DINNER
  13. FERROUS SULFATE [Concomitant]
     Active Substance: FERROUS SULFATE
     Dosage: 1 TABLET PER DINNER
  14. LORAZEPAM [Concomitant]
     Active Substance: LORAZEPAM
     Dosage: 1 MG BEDTIME
  15. PREGABALIN [Concomitant]
     Active Substance: PREGABALIN
     Dosage: 50 MG/DINNER
  16. PANTOPRAZOLE SODIUM [Concomitant]
     Active Substance: PANTOPRAZOLE SODIUM
     Dosage: 1 TAB/BREAKFAST
  17. MAGNESIUM ASPARTATE HYDROCHLORIDE [Concomitant]
     Active Substance: MAGNESIUM ASPARTATE HYDROCHLORIDE
     Dosage: 1229.6 MG
  18. EPOETINA ZETA [Concomitant]
     Dosage: 10000 UI/WEEK
  19. RIVOTRIL [Concomitant]
     Active Substance: CLONAZEPAM
     Dosage: 2 TABS/DINNER
  20. ALFUZOSIN HYDROCHLORIDE [Concomitant]
     Active Substance: ALFUZOSIN HYDROCHLORIDE
     Dosage: 1 TAB/DINNER
  21. ALLOPURINOL [Concomitant]
     Active Substance: ALLOPURINOL
     Dosage: 1 TAB/BREAKFAST
  22. NORVASC [Concomitant]
     Active Substance: AMLODIPINE BESYLATE
     Dosage: 1 TAB/DINNER
  23. CALCITRIOL [Concomitant]
     Active Substance: CALCITRIOL
     Dosage: 0.25 MICROGRAM, 4 WEEKS
  24. CALCIUM CARBONATE [Concomitant]
     Active Substance: CALCIUM CARBONATE
     Dosage: 2 CAPS/LUNCH AND 2 CAPS/DINNER
  25. RENAGEL [Concomitant]
     Active Substance: SEVELAMER HYDROCHLORIDE
     Dosage: 3 TAB/BREAKFAST + 3 TABS LUNCH+3 TABS/DINNER
  26. CINACALCET HYDROCHLORIDE [Concomitant]
     Active Substance: CINACALCET HYDROCHLORIDE
     Dosage: 30 MG, 1 TAB/DINNER
  27. CINACALCET HYDROCHLORIDE [Concomitant]
     Active Substance: CINACALCET HYDROCHLORIDE
     Dosage: 60 MG, 1 TAB/DINNER
  28. FOLIC ACID [Concomitant]
     Active Substance: FOLIC ACID
     Dosage: 1 TAB/DINNER

REACTIONS (15)
  - Incarcerated umbilical hernia [Unknown]
  - Hernia pain [Recovering/Resolving]
  - Abdominal rebound tenderness [Recovered/Resolved]
  - Abdominal pain [Recovered/Resolved]
  - Hypervolaemia [Unknown]
  - Dyspnoea [Not Recovered/Not Resolved]
  - Peritonitis bacterial [Recovering/Resolving]
  - Peritoneal cloudy effluent [Recovered/Resolved]
  - Pain [Unknown]
  - Oedema peripheral [Not Recovered/Not Resolved]
  - Pleural effusion [Unknown]
  - Vomiting [Recovered/Resolved]
  - Nausea [Unknown]
  - Cough [Recovering/Resolving]
  - Hypertension [Unknown]

NARRATIVE: CASE EVENT DATE: 20251209
